FAERS Safety Report 4510643-2 (Version None)
Quarter: 2004Q4

REPORT INFORMATION
  Report Type: 
  Country: None (occurrence: None)
  Receive Date: 20041122
  Receipt Date: 20041108
  Transmission Date: 20050328
  Serious: Yes (Hospitalization)
  Sender: FDA-Public Use
  Company Number: 2004-UK-01167UK

PATIENT
  Age: 74 Year
  Sex: Female

DRUGS (5)
  1. MOBIC [Suspect]
     Indication: ARTHRALGIA
     Dosage: 15 MG ONCE DAILY(ONCE DAILY) , PO
     Route: 048
     Dates: start: 19981104, end: 20041022
  2. QUININE SULPHATE (QUININE SULFATE) [Concomitant]
  3. THYROXINE (LEVOTHYROXINE SODIUM) [Concomitant]
  4. XYZAL (LEVOCETIRIZINE DIHYDROCHLORIDE) [Concomitant]
  5. ISTIN (AMLODIPINE BESILATE) [Concomitant]

REACTIONS (2)
  - ILEAL ULCER [None]
  - SMALL INTESTINAL OBSTRUCTION [None]
